FAERS Safety Report 9433716 (Version 1)
Quarter: 2013Q3

REPORT INFORMATION
  Report Type: Spontaneous
  Country: US (occurrence: US)
  Receive Date: 20130731
  Receipt Date: 20130731
  Transmission Date: 20140515
  Serious: No
  Sender: FDA-Public Use
  Company Number: US-009507513-1307USA016602

PATIENT
  Sex: Male

DRUGS (2)
  1. TINACTIN SPRAY POWDER [Suspect]
     Indication: GENITAL INFECTION FUNGAL
     Dosage: UNK, UNKNOWN
     Route: 061
  2. TINACTIN SPRAY POWDER [Suspect]
     Indication: MEDICAL OBSERVATION

REACTIONS (1)
  - Application site pain [Unknown]
